FAERS Safety Report 4382387-1 (Version None)
Quarter: 2004Q2

REPORT INFORMATION
  Report Type: 
  Country: None (occurrence: None)
  Receive Date: 20040622
  Receipt Date: 20040429
  Transmission Date: 20050107
  Serious: Yes (Hospitalization, Other)
  Sender: FDA-Public Use
  Company Number: DE-BRISTOL-MYERS SQUIBB COMPANY-12574539

PATIENT
  Age: 75 Year
  Sex: Male
  Weight: 82 kg

DRUGS (2)
  1. PACLITAXEL [Suspect]
     Indication: BLADDER CANCER
     Dosage: THERAPY FROM 21-APR-2004 TO 12-MAY-2004.
     Route: 042
     Dates: start: 20040421, end: 20040421
  2. GEMCITABINE [Suspect]
     Indication: BLADDER CANCER
     Dosage: THERAPY FROM 21-APR-2004 TO 19-MAY-2004.
     Route: 042
     Dates: start: 20040421, end: 20040421

REACTIONS (3)
  - PYREXIA [None]
  - THROMBOCYTOPENIA [None]
  - URINARY TRACT INFECTION [None]
